FAERS Safety Report 7525477-4 (Version None)
Quarter: 2011Q2

REPORT INFORMATION
  Report Type: 
  Country: None (occurrence: None)
  Receive Date: 20110602
  Receipt Date: 20110602
  Transmission Date: 20111010
  Serious: Yes (Hospitalization, Other)
  Sender: FDA-Public Use
  Company Number: None

PATIENT
  Sex: Female
  Weight: 90.2658 kg

DRUGS (1)
  1. CYMBALTA [Suspect]
     Indication: ARTHRITIS
     Dosage: 30 1 A DAY
     Dates: start: 20110326

REACTIONS (5)
  - FALL [None]
  - EPISTAXIS [None]
  - ABNORMAL DREAMS [None]
  - HEAD INJURY [None]
  - TOOTH FRACTURE [None]
